FAERS Safety Report 4768691-3 (Version None)
Quarter: 2005Q3

REPORT INFORMATION
  Report Type: 
  Country: None (occurrence: None)
  Receive Date: 20050914
  Receipt Date: 20050902
  Transmission Date: 20060218
  Serious: Yes (Other)
  Sender: FDA-Public Use
  Company Number: US-JNJFOC-20050901774

PATIENT
  Age: 26 Year
  Sex: Female
  Weight: 86.18 kg

DRUGS (2)
  1. DURAGESIC-100 [Suspect]
     Route: 062
  2. ATIVAN [Concomitant]
     Indication: ANXIETY

REACTIONS (5)
  - AUTOIMMUNE THYROIDITIS [None]
  - DRUG WITHDRAWAL SYNDROME [None]
  - GASTRIC DISORDER [None]
  - HEART RATE INCREASED [None]
  - INSOMNIA [None]
